FAERS Safety Report 8303233 (Version 3)
Quarter: 2012Q4

REPORT INFORMATION
  Report Type: 
  Country: US (occurrence: US)
  Receive Date: 20111220
  Receipt Date: 20121030
  Transmission Date: 20130627
  Serious: Yes (Other)
  Sender: FDA-Public Use
  Company Number: US-ROCHE-802965

PATIENT
  Age: 19 Year
  Sex: Male
  Weight: 97.61 kg

DRUGS (1)
  1. ACCUTANE [Suspect]
     Indication: ACNE
     Route: 065
     Dates: start: 20011227, end: 200207

REACTIONS (5)
  - Crohn^s disease [Unknown]
  - Stress [Unknown]
  - Depression [Unknown]
  - Lip dry [Unknown]
  - Dry skin [Unknown]
